FAERS Safety Report 15190146 (Version 2)
Quarter: 2018Q3

REPORT INFORMATION
  Report Type: Report from Study
  Country: DE (occurrence: DE)
  Receive Date: 20180724
  Receipt Date: 20180730
  Transmission Date: 20181010
  Serious: Yes (Other)
  Sender: FDA-Public Use
  Company Number: DE-SA-2018SA164268

PATIENT
  Age: 67 Year
  Sex: Male
  Weight: 119 kg

DRUGS (2)
  1. CABAZITAXEL [Suspect]
     Active Substance: CABAZITAXEL
     Dosage: 15 MG/M2
     Route: 042
     Dates: start: 20180605, end: 20180605
  2. CABAZITAXEL [Suspect]
     Active Substance: CABAZITAXEL
     Dosage: 15 MG/M2
     Route: 042
     Dates: start: 20180305, end: 20180305

REACTIONS (3)
  - Seasonal allergy [Unknown]
  - Hypersensitivity [Recovered/Resolved]
  - Eye burns [Unknown]

NARRATIVE: CASE EVENT DATE: 20180612
